FAERS Safety Report 4843970-X (Version None)
Quarter: 2005Q4

REPORT INFORMATION
  Report Type: 
  Country: None (occurrence: None)
  Receive Date: 20051202
  Receipt Date: 20050816
  Transmission Date: 20060501
  Serious: Yes (Hospitalization)
  Sender: FDA-Public Use
  Company Number: CA-MERCK-0508CAN00108

PATIENT
  Age: 81 Year
  Sex: Male

DRUGS (1)
  1. PROSCAR [Suspect]
     Indication: BENIGN PROSTATIC HYPERPLASIA
     Route: 048
     Dates: start: 20040805, end: 20050726

REACTIONS (6)
  - BENIGN PROSTATIC HYPERPLASIA [None]
  - BUNDLE BRANCH BLOCK RIGHT [None]
  - DRY SKIN [None]
  - HAEMATURIA [None]
  - HEPATIC STEATOSIS [None]
  - PRURITUS [None]
